FAERS Safety Report 6259100-6 (Version None)
Quarter: 2009Q3

REPORT INFORMATION
  Report Type: 
  Country: None (occurrence: None)
  Receive Date: 20090702
  Receipt Date: 20090630
  Transmission Date: 20100115
  Serious: Yes (Hospitalization)
  Sender: FDA-Public Use
  Company Number: US025516

PATIENT
  Age: 62 Year
  Sex: Male
  Weight: 73 kg

DRUGS (10)
  1. TREANDA [Suspect]
     Indication: NON-HODGKIN'S LYMPHOMA
     Dosage: (90 MG/M2,D1 AND D2 Q35 DAYS),INTRAVENOUS (NOT OTHERWISE SPECIFIED)
     Route: 042
     Dates: start: 20090224, end: 20090225
  2. VELCADE [Suspect]
     Indication: NON-HODGKIN'S LYMPHOMA
     Dosage: (1.6 MG/M2,CYCLE 1, DAYS 1,8,15,22 Q35 DAYS),INTRAVENOUS (NOT OTHERWISE SPECIFIED)
     Route: 042
     Dates: start: 20090224, end: 20090318
  3. RITUXIMAB (RITUXIMAB) [Concomitant]
  4. ADVIL (MEFENAMIC ACID) [Concomitant]
  5. ALEVE [Concomitant]
  6. MIRALAX [Concomitant]
  7. BENADARYL (DIPHENHYDRAMINE HYDROCHLORIDE) [Concomitant]
  8. ACETAMINOPHEN [Concomitant]
  9. ALOXI [Concomitant]
  10. LOVAZA [Concomitant]

REACTIONS (19)
  - ALPHA HAEMOLYTIC STREPTOCOCCAL INFECTION [None]
  - ATELECTASIS [None]
  - BACTERIAL SEPSIS [None]
  - CLOSTRIDIAL INFECTION [None]
  - COLLAPSE OF LUNG [None]
  - DEHYDRATION [None]
  - GENERALISED OEDEMA [None]
  - HYPOTENSION [None]
  - LEUKOCYTOSIS [None]
  - LEUKOPENIA [None]
  - LUNG INFILTRATION [None]
  - LYMPHOMA [None]
  - MALIGNANT NEOPLASM PROGRESSION [None]
  - MYOCARDIAL ISCHAEMIA [None]
  - NEUTROPENIA [None]
  - ORTHOSTATIC HYPOTENSION [None]
  - PERICARDIAL EFFUSION [None]
  - PLEURAL EFFUSION [None]
  - SINUS TACHYCARDIA [None]
